FAERS Safety Report 17798058 (Version 2)
Quarter: 2020Q2

REPORT INFORMATION
  Report Type: Spontaneous
  Country: JP (occurrence: JP)
  Receive Date: 20200518
  Receipt Date: 20200525
  Transmission Date: 20200714
  Serious: Yes (Death, Life-Threatening, Hospitalization, Other)
  Sender: FDA-Public Use
  Company Number: JP-STRIDES ARCOLAB LIMITED-2020SP005729

PATIENT
  Age: 40 Year
  Sex: Female
  Weight: 52 kg

DRUGS (4)
  1. PREDNISOLONE. [Suspect]
     Active Substance: PREDNISOLONE
     Indication: SYSTEMIC LUPUS ERYTHEMATOSUS
  2. TACROLIMUS. [Suspect]
     Active Substance: TACROLIMUS
     Indication: SYSTEMIC LUPUS ERYTHEMATOSUS
  3. TACROLIMUS. [Suspect]
     Active Substance: TACROLIMUS
     Indication: MYASTHENIA GRAVIS
     Dosage: 3 MILLIGRAM PER DAY
     Route: 048
     Dates: start: 201111, end: 201702
  4. PREDNISOLONE. [Suspect]
     Active Substance: PREDNISOLONE
     Indication: MYASTHENIA GRAVIS
     Dosage: 7 MILLIGRAM PER DAY
     Route: 048
     Dates: start: 201111

REACTIONS (22)
  - Cerebral infarction [Fatal]
  - Central nervous system vasculitis [Fatal]
  - Musculoskeletal pain [Unknown]
  - Myelopathy [Fatal]
  - Headache [Unknown]
  - Cardio-respiratory arrest [Fatal]
  - Encephalomyelitis [Fatal]
  - Varicella zoster virus infection [Fatal]
  - Herpes zoster disseminated [Fatal]
  - Muscular weakness [Unknown]
  - Seizure [Unknown]
  - Necrosis ischaemic [Unknown]
  - Necrosis [Unknown]
  - Gait inability [Unknown]
  - Sensory disturbance [Unknown]
  - Brown-Sequard syndrome [Fatal]
  - Cerebral haemorrhage [Fatal]
  - Back pain [Unknown]
  - Pneumonia aspiration [Fatal]
  - Herpes zoster [Fatal]
  - Altered state of consciousness [Unknown]
  - Off label use [Unknown]

NARRATIVE: CASE EVENT DATE: 201111
